FAERS Safety Report 7824555-X (Version None)
Quarter: 2011Q4

REPORT INFORMATION
  Report Type: 
  Country: None (occurrence: None)
  Receive Date: 20111019
  Receipt Date: 20111005
  Transmission Date: 20120403
  Serious: Yes (Hospitalization, Other)
  Sender: FDA-Public Use
  Company Number: US-ELI_LILLY_AND_COMPANY-US201110001795

PATIENT

DRUGS (1)
  1. CYMBALTA [Suspect]

REACTIONS (3)
  - OFF LABEL USE [None]
  - SUICIDAL IDEATION [None]
  - HOSPITALISATION [None]
